FAERS Safety Report 4775592-3 (Version None)
Quarter: 2005Q3

REPORT INFORMATION
  Report Type: 
  Country: None (occurrence: None)
  Receive Date: 20050919
  Receipt Date: 20050919
  Transmission Date: 20060218
  Serious: Yes (Disabling)
  Sender: FDA-Public Use
  Company Number: None

PATIENT
  Age: 28 Year
  Sex: Female
  Weight: 102.9665 kg

DRUGS (2)
  1. PAXIL [Suspect]
     Indication: ANXIETY
     Dosage: 20MG 1 PER DAY
     Dates: start: 20010401, end: 20050901
  2. PAXIL [Suspect]
     Indication: POSTPARTUM DISORDER
     Dosage: 20MG 1 PER DAY
     Dates: start: 20010401, end: 20050901

REACTIONS (4)
  - ABNORMAL DREAMS [None]
  - ANOREXIA [None]
  - DRUG WITHDRAWAL SYNDROME [None]
  - HYPOAESTHESIA [None]
